FAERS Safety Report 7643923-2 (Version None)
Quarter: 2011Q3

REPORT INFORMATION
  Report Type: 
  Country: None (occurrence: None)
  Receive Date: 20110729
  Receipt Date: 20110727
  Transmission Date: 20111222
  Serious: Yes (Other)
  Sender: FDA-Public Use
  Company Number: US-PFIZER INC-2011171269

PATIENT
  Sex: Female
  Weight: 55.329 kg

DRUGS (5)
  1. LEVOXYL [Concomitant]
     Indication: HYPOTHYROIDISM
     Dosage: 0.5 MG, DAILY
     Dates: start: 20030901
  2. ALLEGRA [Concomitant]
     Indication: DRUG HYPERSENSITIVITY
  3. MULTI-VITAMINS [Concomitant]
     Indication: ROUTINE HEALTH MAINTENANCE
     Dosage: UNK, DAILY
  4. ALLEGRA [Concomitant]
     Indication: FOOD ALLERGY
     Dosage: 180 MG, DAILY
  5. LIPITOR [Suspect]
     Indication: LOW DENSITY LIPOPROTEIN INCREASED
     Dosage: 10 MG, DAILY
     Route: 048
     Dates: start: 20110501, end: 20110717

REACTIONS (1)
  - PANCREATITIS [None]
